FAERS Safety Report 11196441 (Version 1)
Quarter: 2015Q2

REPORT INFORMATION
  Report Type: Report from Study
  Country: AU (occurrence: None)
  Receive Date: 20150615
  Receipt Date: 20150615
  Transmission Date: 20150821
  Serious: Yes (Other)
  Sender: FDA-Public Use
  Company Number: 2015-11521

PATIENT
  Age: 81 Year
  Sex: Male

DRUGS (1)
  1. EYLEA [Suspect]
     Active Substance: AFLIBERCEPT
     Indication: NEOVASCULAR AGE-RELATED MACULAR DEGENERATION
     Dosage: 2 MG, Q8WK, INTRAOCULAR
     Route: 031

REACTIONS (4)
  - Incorrect drug administration rate [None]
  - Vertigo positional [None]
  - Off label use [None]
  - Eye haemorrhage [None]

NARRATIVE: CASE EVENT DATE: 20150211
